FAERS Safety Report 10418225 (Version 1)
Quarter: 2014Q2

REPORT INFORMATION
  Report Type: Spontaneous
  Country: US (occurrence: None)
  Receive Date: 20140609
  Receipt Date: 20140609
  Transmission Date: 20141212
  Serious: No
  Sender: FDA-Public Use
  Company Number: 2014TUS001466

PATIENT
  Age: 53 Year
  Sex: Male
  Weight: 81.6 kg

DRUGS (2)
  1. BRINTELLIX [Suspect]
     Indication: DEPRESSION
     Route: 048
     Dates: start: 20140224, end: 20140228
  2. BRINTELLIX [Suspect]
     Indication: MAJOR DEPRESSION
     Route: 048
     Dates: start: 20140224, end: 20140228

REACTIONS (1)
  - Rash [None]
